FAERS Safety Report 13842465 (Version 6)
Quarter: 2017Q3

REPORT INFORMATION
  Report Type: Report from Study
  Country: CA (occurrence: CA)
  Receive Date: 20170808
  Receipt Date: 20170816
  Transmission Date: 20171127
  Serious: Yes (Death, Life-Threatening, Hospitalization, Other)
  Sender: FDA-Public Use
  Company Number: PHHY2013CA116050

PATIENT
  Age: 80 Year
  Sex: Female

DRUGS (7)
  1. SANDOSTATIN LAR DEPOT [Suspect]
     Active Substance: OCTREOTIDE ACETATE
     Indication: NEUROENDOCRINE TUMOUR
     Dosage: 30 MG, QMO (EVERY 4 WEEKS)
     Route: 030
     Dates: start: 20130424
  2. DILAUDID [Concomitant]
     Active Substance: HYDROMORPHONE HYDROCHLORIDE
     Indication: PRODUCT USED FOR UNKNOWN INDICATION
     Route: 065
  3. DEXAMETHASONE. [Concomitant]
     Active Substance: DEXAMETHASONE
     Indication: PRODUCT USED FOR UNKNOWN INDICATION
     Route: 065
  4. SANDOSTATIN [Suspect]
     Active Substance: OCTREOTIDE ACETATE
     Indication: NEUROENDOCRINE TUMOUR
     Route: 058
     Dates: start: 20130410
  5. METOPROLOL. [Suspect]
     Active Substance: METOPROLOL
     Indication: CARCINOID SYNDROME
     Route: 048
  6. TEMOZOLOMIDE. [Concomitant]
     Active Substance: TEMOZOLOMIDE
     Indication: PRODUCT USED FOR UNKNOWN INDICATION
     Route: 065
  7. CAPECITABINE. [Concomitant]
     Active Substance: CAPECITABINE
     Indication: PRODUCT USED FOR UNKNOWN INDICATION

REACTIONS (20)
  - Blood pressure increased [Unknown]
  - Ligament sprain [Recovering/Resolving]
  - Epigastric discomfort [Unknown]
  - Procedural complication [Fatal]
  - Fall [Unknown]
  - Diarrhoea [Unknown]
  - Pneumonia [Fatal]
  - Nasopharyngitis [Unknown]
  - Blood pressure systolic increased [Unknown]
  - Gastrointestinal disorder [Unknown]
  - Blood thyroid stimulating hormone decreased [Unknown]
  - Asthenia [Unknown]
  - Limb discomfort [Unknown]
  - Body temperature decreased [Unknown]
  - Oesophageal candidiasis [Not Recovered/Not Resolved]
  - Memory impairment [Unknown]
  - Muscle strain [Recovering/Resolving]
  - Fistula [Unknown]
  - Abdominal distension [Unknown]
  - Heart rate decreased [Unknown]

NARRATIVE: CASE EVENT DATE: 2014
